FAERS Safety Report 6418140-4 (Version None)
Quarter: 2009Q4

REPORT INFORMATION
  Report Type: 
  Country: None (occurrence: None)
  Receive Date: 20091028
  Receipt Date: 20091020
  Transmission Date: 20100525
  Serious: Yes (Other)
  Sender: FDA-Public Use
  Company Number: US-BAXTER-2009BH013288

PATIENT
  Age: 51 Year
  Sex: Male
  Weight: 102 kg

DRUGS (2)
  1. HEPARIN SODIUM INJECTION [Suspect]
     Indication: ANGIOPLASTY
     Route: 042
     Dates: start: 20071124
  2. HEPARIN SODIUM INJECTION [Suspect]
     Indication: CATHETERISATION CARDIAC
     Route: 042
     Dates: start: 20071124

REACTIONS (6)
  - CARDIOMEGALY [None]
  - FEELING ABNORMAL [None]
  - HOT FLUSH [None]
  - HYPERSENSITIVITY [None]
  - IMMOBILE [None]
  - VITAL FUNCTIONS ABNORMAL [None]
